FAERS Safety Report 20421384 (Version 1)
Quarter: 2022Q1

REPORT INFORMATION
  Report Type: Spontaneous
  Country: CN (occurrence: CN)
  Receive Date: 20220203
  Receipt Date: 20220203
  Transmission Date: 20220424
  Serious: Yes (Hospitalization)
  Sender: FDA-Public Use
  Company Number: CN-NAPPMUNDI-GBR-2022-0094653

PATIENT
  Age: 81 Year
  Sex: Female
  Weight: 50 kg

DRUGS (1)
  1. OXYCODONE HYDROCHLORIDE [Suspect]
     Active Substance: OXYCODONE HYDROCHLORIDE
     Indication: Cancer pain
     Dosage: 10 MG, DAILY
     Route: 048
     Dates: start: 20220101, end: 20220121

REACTIONS (3)
  - Sphincter of Oddi dysfunction [Recovering/Resolving]
  - Biliary obstruction [Recovering/Resolving]
  - Hepatic function abnormal [Recovering/Resolving]

NARRATIVE: CASE EVENT DATE: 20220119
